FAERS Safety Report 7012470-3 (Version None)
Quarter: 2010Q3

REPORT INFORMATION
  Report Type: 
  Country: None (occurrence: None)
  Receive Date: 20100924
  Receipt Date: 20100915
  Transmission Date: 20110219
  Serious: Yes (Hospitalization, Other)
  Sender: FDA-Public Use
  Company Number: FR-BRISTOL-MYERS SQUIBB COMPANY-15298565

PATIENT
  Sex: Female

DRUGS (1)
  1. LISODREN [Suspect]
     Indication: ADJUVANT THERAPY

REACTIONS (1)
  - PANCREATITIS ACUTE [None]
